FAERS Safety Report 6354903-1 (Version None)
Quarter: 2009Q3

REPORT INFORMATION
  Report Type: 
  Country: None (occurrence: None)
  Receive Date: 20090914
  Receipt Date: 20090901
  Transmission Date: 20100115
  Serious: Yes (Other)
  Sender: FDA-Public Use
  Company Number: NO-MERCK-0909NOR00005

PATIENT
  Age: 80 Year
  Sex: Male

DRUGS (1)
  1. COZAAR [Suspect]
     Route: 065

REACTIONS (1)
  - HALLUCINATION, VISUAL [None]
